FAERS Safety Report 25232578 (Version 1)
Quarter: 2025Q2

REPORT INFORMATION
  Report Type: Spontaneous
  Country: ES (occurrence: ES)
  Receive Date: 20250424
  Receipt Date: 20250424
  Transmission Date: 20250716
  Serious: Yes (Life-Threatening, Hospitalization)
  Sender: ACCORD
  Company Number: ES-Accord-480584

PATIENT
  Age: 39 Year
  Sex: Female

DRUGS (12)
  1. PACLITAXEL [Suspect]
     Active Substance: PACLITAXEL
     Indication: Invasive ductal breast carcinoma
     Dates: start: 20221112, end: 20221112
  2. POLYOXYL 35 CASTOR OIL [Suspect]
     Active Substance: POLYOXYL 35 CASTOR OIL
     Indication: Invasive ductal breast carcinoma
     Dates: start: 20221112, end: 20221112
  3. PERTUZUMAB [Concomitant]
     Active Substance: PERTUZUMAB
     Indication: Invasive ductal breast carcinoma
     Dates: start: 20221112, end: 20221112
  4. TRASTUZUMAB [Concomitant]
     Active Substance: TRASTUZUMAB
     Indication: Invasive ductal breast carcinoma
     Dates: start: 20221112, end: 20221112
  5. TRASTUZUMAB [Concomitant]
     Active Substance: TRASTUZUMAB
     Indication: HER2 positive breast cancer
     Dates: start: 20221112, end: 20221112
  6. PACLITAXEL [Suspect]
     Active Substance: PACLITAXEL
     Indication: HER2 positive breast cancer
     Dates: start: 20221112, end: 20221112
  7. PERTUZUMAB [Concomitant]
     Active Substance: PERTUZUMAB
     Indication: Invasive ductal breast carcinoma
     Dates: start: 20221112, end: 20221112
  8. PERTUZUMAB [Concomitant]
     Active Substance: PERTUZUMAB
     Indication: HER2 positive breast cancer
     Dates: start: 20221112, end: 20221112
  9. TRASTUZUMAB [Concomitant]
     Active Substance: TRASTUZUMAB
     Indication: Invasive ductal breast carcinoma
     Dates: start: 20221112, end: 20221112
  10. TRASTUZUMAB [Concomitant]
     Active Substance: TRASTUZUMAB
     Indication: HER2 positive breast cancer
     Dates: start: 20221112, end: 20221112
  11. PERTUZUMAB [Concomitant]
     Active Substance: PERTUZUMAB
     Indication: HER2 positive breast cancer
     Dates: start: 20221112, end: 20221112
  12. POLYOXYL 35 CASTOR OIL [Suspect]
     Active Substance: POLYOXYL 35 CASTOR OIL
     Indication: HER2 positive breast cancer
     Dates: start: 20221112, end: 20221112

REACTIONS (2)
  - Kounis syndrome [Recovered/Resolved]
  - Anaphylactic shock [Recovered/Resolved]

NARRATIVE: CASE EVENT DATE: 20221112
